FAERS Safety Report 11559228 (Version 1)
Quarter: 2015Q3

REPORT INFORMATION
  Report Type: Spontaneous
  Country: US (occurrence: US)
  Receive Date: 20150928
  Receipt Date: 20150928
  Transmission Date: 20151125
  Serious: No
  Sender: FDA-Public Use
  Company Number: US-TEVA-596629ACC

PATIENT
  Sex: Female

DRUGS (1)
  1. PLAN B ONE-STEP [Suspect]
     Active Substance: LEVONORGESTREL
     Indication: POST COITAL CONTRACEPTION
     Dates: start: 20150912, end: 20150912

REACTIONS (9)
  - Fatigue [Unknown]
  - Paraesthesia [Unknown]
  - Muscle spasms [Unknown]
  - Headache [Unknown]
  - Abdominal pain lower [Unknown]
  - Vaginal discharge [Unknown]
  - Vomiting [Unknown]
  - Breast pain [Unknown]
  - Nausea [Unknown]
